FAERS Safety Report 25514176 (Version 1)
Quarter: 2025Q3

REPORT INFORMATION
  Report Type: Spontaneous
  Country: US (occurrence: US)
  Receive Date: 20250703
  Receipt Date: 20250703
  Transmission Date: 20251020
  Serious: No
  Sender: RADIUS PHARM
  Company Number: US-RADIUS HEALTH INC.-2024US010012

PATIENT
  Sex: Female

DRUGS (1)
  1. TYMLOS [Suspect]
     Active Substance: ABALOPARATIDE
     Indication: Product used for unknown indication
     Route: 065
     Dates: start: 2024

REACTIONS (7)
  - Gastrointestinal sounds abnormal [Unknown]
  - Defaecation disorder [Unknown]
  - Mucosal dryness [Unknown]
  - Decreased appetite [Unknown]
  - Constipation [Unknown]
  - Tinnitus [Unknown]
  - Eructation [Unknown]
